FAERS Safety Report 5370729-X (Version None)
Quarter: 2007Q2

REPORT INFORMATION
  Report Type: 
  Country: None (occurrence: None)
  Receive Date: 20070614
  Receipt Date: 20070403
  Transmission Date: 20071010
  Serious: No
  Sender: FDA-Public Use
  Company Number: BDI-009351

PATIENT
  Age: 30 Year
  Sex: Female

DRUGS (1)
  1. MULTIHANCE [Suspect]
     Dosage: 16 ML ONCE IV
     Route: 042
     Dates: start: 20070323, end: 20070323

REACTIONS (1)
  - VOMITING [None]
